FAERS Safety Report 12312473 (Version 2)
Quarter: 2016Q2

REPORT INFORMATION
  Report Type: Report from Study
  Country: US (occurrence: US)
  Receive Date: 20160428
  Receipt Date: 20160622
  Transmission Date: 20160815
  Serious: Yes (Hospitalization)
  Sender: FDA-Public Use
  Company Number: US-ROCHE-1730525

PATIENT
  Age: 75 Year
  Sex: Female
  Weight: 61.5 kg

DRUGS (27)
  1. DOCUSATE SODIUM. [Concomitant]
     Active Substance: DOCUSATE SODIUM
     Indication: CONSTIPATION
     Route: 065
     Dates: start: 20160311, end: 20160316
  2. ENOXAPARIN [Concomitant]
     Active Substance: ENOXAPARIN
     Indication: DEEP VEIN THROMBOSIS
     Route: 065
     Dates: start: 20160313, end: 20160319
  3. ESZOPICLONE. [Concomitant]
     Active Substance: ESZOPICLONE
     Indication: INSOMNIA
     Route: 065
     Dates: start: 20160310, end: 20160318
  4. FUROSEMIDE. [Concomitant]
     Active Substance: FUROSEMIDE
     Indication: PREMEDICATION
     Route: 065
     Dates: start: 20160316, end: 20160319
  5. MAGNESIUM HYDROXIDE. [Concomitant]
     Active Substance: MAGNESIUM HYDROXIDE
     Indication: CONSTIPATION
     Route: 065
     Dates: start: 20160314, end: 20160315
  6. CHOLECALCIFEROL [Concomitant]
     Active Substance: CHOLECALCIFEROL
     Indication: OSTEOPOROSIS
  7. RITUXIMAB [Suspect]
     Active Substance: RITUXIMAB
     Indication: NON-HODGKIN^S LYMPHOMA
     Dosage: MOST RECENT DOSE PRIOR TO EVENT ON 15/MAR/2016.
     Route: 042
     Dates: start: 20160315
  8. VINCRISTINE [Suspect]
     Active Substance: VINCRISTINE
     Indication: NON-HODGKIN^S LYMPHOMA
     Dosage: MOST RECENT DOSE PRIOR TO EVENT ON 15/MAR/2016.
     Route: 042
     Dates: start: 20160315
  9. ALLOPURINOL. [Concomitant]
     Active Substance: ALLOPURINOL
     Indication: BLOOD URIC ACID INCREASED
     Route: 065
     Dates: start: 20160311, end: 20160319
  10. ESZOPICLONE. [Concomitant]
     Active Substance: ESZOPICLONE
     Route: 065
  11. SALMETEROL [Concomitant]
     Active Substance: SALMETEROL
     Indication: DYSPNOEA
     Route: 065
     Dates: start: 20160311, end: 20160319
  12. CYCLOPHOSPHAMIDE. [Suspect]
     Active Substance: CYCLOPHOSPHAMIDE
     Indication: NON-HODGKIN^S LYMPHOMA
     Dosage: MOST RECENT DOSE PRIOR TO EVENT ON 15/MAR/2016.
     Route: 042
     Dates: start: 20160315
  13. PREDNISONE. [Suspect]
     Active Substance: PREDNISONE
     Indication: NON-HODGKIN^S LYMPHOMA
     Dosage: MOST RECENT DOSE PRIOR TO EVENT ON 19/MAR/2016 AT 100 OTHER.
     Route: 048
     Dates: start: 20160315
  14. LEVALBUTEROL. [Concomitant]
     Active Substance: LEVALBUTEROL
     Indication: DYSPNOEA
     Route: 065
     Dates: start: 20160316, end: 20160318
  15. MOMETASONE [Concomitant]
     Active Substance: MOMETASONE
     Indication: DYSPNOEA
     Route: 065
     Dates: start: 20160313, end: 20160319
  16. NORMAL SALINE [Concomitant]
     Active Substance: SODIUM CHLORIDE
     Indication: PREMEDICATION
     Route: 065
     Dates: start: 20160310, end: 20160318
  17. PALONOSETRON [Concomitant]
     Active Substance: PALONOSETRON
     Indication: PREMEDICATION
     Route: 065
     Dates: start: 20160315, end: 20160315
  18. VENETOCLAX [Suspect]
     Active Substance: VENETOCLAX
     Indication: NON-HODGKIN^S LYMPHOMA
     Dosage: ON 19/MAR/2016, SHE RECEIVED THE MOST RECENT DOSE OF VENETOCLAX AT 800 MG PRIOR TO EVENT ONSET.
     Route: 048
     Dates: start: 20160318
  19. VENETOCLAX [Suspect]
     Active Substance: VENETOCLAX
     Dosage: (C1D9-C1D10)
     Route: 048
     Dates: start: 20160323, end: 20160324
  20. DEXAMETHASONE. [Concomitant]
     Active Substance: DEXAMETHASONE
     Indication: PREMEDICATION
     Route: 065
     Dates: start: 20150315, end: 20160315
  21. DIPHENHYDRAMINE. [Concomitant]
     Active Substance: DIPHENHYDRAMINE
     Indication: PREMEDICATION
     Route: 065
     Dates: start: 20160315, end: 20160315
  22. ACETAMINOPHEN. [Concomitant]
     Active Substance: ACETAMINOPHEN
     Indication: PREMEDICATION
     Route: 065
     Dates: start: 20160315, end: 20160315
  23. POTASSIUM CHLORIDE. [Concomitant]
     Active Substance: POTASSIUM CHLORIDE
     Indication: PREMEDICATION
     Route: 065
     Dates: start: 20160316, end: 20160319
  24. DOXORUBICIN [Suspect]
     Active Substance: DOXORUBICIN
     Indication: NON-HODGKIN^S LYMPHOMA
     Dosage: MOST RECENT DOSE PRIOR TO EVENT ON 15/MAR/2016.
     Route: 042
     Dates: start: 20160315
  25. PEGFILGRASTIM [Concomitant]
     Active Substance: PEGFILGRASTIM
     Indication: FEBRILE NEUTROPENIA
     Route: 065
     Dates: start: 20160317, end: 20160317
  26. PREGABALIN. [Concomitant]
     Active Substance: PREGABALIN
     Indication: ANALGESIC THERAPY
     Route: 065
     Dates: start: 20160310, end: 20160319
  27. FOSAPREPITANT [Concomitant]
     Active Substance: FOSAPREPITANT
     Indication: PREMEDICATION
     Route: 065
     Dates: start: 20160315, end: 20160315

REACTIONS (1)
  - Upper gastrointestinal haemorrhage [Recovered/Resolved]

NARRATIVE: CASE EVENT DATE: 20160321
